FAERS Safety Report 4304011-6 (Version None)
Quarter: 2004Q1

REPORT INFORMATION
  Report Type: 
  Country: None (occurrence: None)
  Receive Date: 20040223
  Receipt Date: 20031031
  Transmission Date: 20041129
  Serious: No
  Sender: FDA-Public Use
  Company Number: PHEH2003US10053

PATIENT
  Age: 56 Year
  Sex: Female

DRUGS (7)
  1. ZELNORM [Suspect]
     Indication: IRRITABLE BOWEL SYNDROME
     Dosage: 6 MG, BID, ORAL
     Route: 048
     Dates: start: 20031022
  2. HYZAAR [Concomitant]
  3. NEXIUM [Concomitant]
  4. EXCEDRIN   /BRA [Concomitant]
  5. ESGIC-PLUS [Concomitant]
  6. ZOLOFT [Concomitant]
  7. LORAZEPAM [Concomitant]

REACTIONS (2)
  - PRURITUS [None]
  - RASH [None]
